FAERS Safety Report 23268249 (Version 1)
Quarter: 2023Q4

REPORT INFORMATION
  Report Type: Spontaneous
  Country: US (occurrence: None)
  Receive Date: 20231206
  Receipt Date: 20231206
  Transmission Date: 20240109
  Serious: No
  Sender: FDA-Public Use
  Company Number: None

PATIENT
  Age: 63 Year
  Sex: Female

DRUGS (1)
  1. ADBRY [Suspect]
     Active Substance: TRALOKINUMAB-LDRM
     Indication: Dermatitis atopic
     Dosage: OTHER QUANTITY : 300MG (2 SYRINGES);?FREQUENCY : EVERY OTHER WEEK;?
     Route: 058
     Dates: start: 202301

REACTIONS (2)
  - Malaise [None]
  - Therapy interrupted [None]
